FAERS Safety Report 6187071-X (Version None)
Quarter: 2009Q2

REPORT INFORMATION
  Report Type: 
  Country: None (occurrence: None)
  Receive Date: 20090512
  Receipt Date: 20090501
  Transmission Date: 20091009
  Serious: Yes (Other)
  Sender: FDA-Public Use
  Company Number: GB-PFIZER INC-2009206950

PATIENT
  Age: 16 Year

DRUGS (9)
  1. CYCLOPHOSPHAMIDE [Suspect]
     Indication: STEM CELL TRANSPLANT
     Dosage: 200 MG/KG
     Route: 048
  2. PREDNISOLONE AND PREDNISOLONE STEAGLATE [Suspect]
     Indication: GRAFT VERSUS HOST DISEASE
  3. BUSULFAN [Suspect]
     Indication: STEM CELL TRANSPLANT
     Dosage: 16 MG/KG
  4. CYCLOSPORINE [Suspect]
     Indication: PROPHYLAXIS AGAINST GRAFT VERSUS HOST DISEASE
  5. MYCOPHENOLIC ACID [Suspect]
     Indication: GRAFT VERSUS HOST DISEASE
  6. TACROLIMUS [Suspect]
     Indication: GRAFT VERSUS HOST DISEASE
  7. INFLIXIMAB [Suspect]
     Indication: GRAFT VERSUS HOST DISEASE
  8. CO-TRIMOXAZOLE [Concomitant]
     Indication: PROPHYLAXIS
  9. ITRACONAZOLE [Concomitant]
     Indication: ANTIFUNGAL PROPHYLAXIS

REACTIONS (11)
  - BRONCHIECTASIS [None]
  - CHRONIC GRAFT VERSUS HOST DISEASE [None]
  - CYSTITIS VIRAL [None]
  - DRUG INEFFECTIVE [None]
  - HUMAN POLYOMAVIRUS INFECTION [None]
  - HYPERTENSION [None]
  - OSTEONECROSIS [None]
  - OSTEOPOROSIS [None]
  - RENAL IMPAIRMENT [None]
  - TREMOR [None]
  - UPPER RESPIRATORY TRACT INFECTION [None]
